FAERS Safety Report 4958344-0 (Version None)
Quarter: 2006Q1

REPORT INFORMATION
  Report Type: 
  Country: None (occurrence: None)
  Receive Date: 20060329
  Receipt Date: 20060329
  Transmission Date: 20060701
  Serious: Yes (Other)
  Sender: FDA-Public Use
  Company Number: None

PATIENT
  Age: 7 Year
  Sex: Male

DRUGS (1)
  1. TAMIFLU [Suspect]
     Dosage: ORAL
     Route: 048

REACTIONS (4)
  - DRUG DISPENSING ERROR [None]
  - HALLUCINATION [None]
  - MEDICATION ERROR [None]
  - VOMITING [None]
